FAERS Safety Report 6421493-4 (Version None)
Quarter: 2009Q4

REPORT INFORMATION
  Report Type: 
  Country: None (occurrence: None)
  Receive Date: 20091030
  Receipt Date: 20091019
  Transmission Date: 20100525
  Serious: Yes (Death)
  Sender: FDA-Public Use
  Company Number: FR-PFIZER INC-2009285511

PATIENT
  Age: 68 Year

DRUGS (16)
  1. CISPLATIN [Suspect]
     Indication: GASTRIC CANCER
     Dosage: 60 MG/M2, CYCLIC
     Route: 042
     Dates: start: 20080114, end: 20080114
  2. EPIRUBICIN HCL [Suspect]
     Indication: GASTRIC CANCER
     Dosage: 50 MG/M2, CYCLIC
     Route: 042
     Dates: start: 20080114, end: 20080114
  3. XELODA [Suspect]
     Indication: GASTRIC CANCER
     Dosage: 1000 MG/M2, CYCLIC
     Route: 048
     Dates: start: 20080114
  4. IRINOTECAN HCL [Suspect]
     Indication: GASTRIC CANCER
     Dosage: 180 MG/M2/14 DAYS, CYCLIC
     Route: 042
     Dates: start: 20070924, end: 20071227
  5. FLUOROURACIL [Suspect]
     Indication: GASTRIC CANCER
     Dosage: 2400 MG/M2/14 DAYS, CYCLIC
     Route: 042
     Dates: start: 20070924, end: 20071228
  6. ELVORINE [Suspect]
     Indication: GASTRIC CANCER
     Dosage: 200 MG/M2/ 14 DAYS, CYCLIC
     Route: 042
     Dates: start: 20070924, end: 20071227
  7. OXYCONTIN [Concomitant]
     Dosage: 100 MG, 2X/DAY
     Route: 048
  8. LASILIX [Concomitant]
     Dosage: UNK
  9. SERETIDE [Concomitant]
     Dosage: 2 DF/ DAY
  10. ALLOPURINOL [Concomitant]
     Dosage: 200 MG, 1X/DAY
  11. ISOPTIN [Concomitant]
     Dosage: 1 DF, 2X/DAY
  12. SPIRIVA [Concomitant]
     Dosage: 1 DF, 1X/DAY
  13. TAMSULOSIN [Concomitant]
     Dosage: UNK
  14. INIPOMP [Concomitant]
     Dosage: UNK
  15. PHOSPHALUGEL [Concomitant]
  16. OXYNORM [Concomitant]
     Indication: PAIN
     Dosage: UNK, EVERY 6 HOURS AS NEEDED

REACTIONS (1)
  - GENERAL PHYSICAL HEALTH DETERIORATION [None]
